FAERS Safety Report 8853487 (Version 2)
Quarter: 2013Q1

REPORT INFORMATION
  Report Type: Spontaneous
  Country: CA (occurrence: CA)
  Receive Date: 20121022
  Receipt Date: 20121126
  Transmission Date: 20140127
  Serious: Yes (Other)
  Sender: FDA-Public Use
  Company Number: CA-ASTRAZENECA-2012SE74885

PATIENT
  Age: 19256 Day
  Sex: Male

DRUGS (2)
  1. PULMICORT TURBUHALER [Suspect]
     Indication: ASTHMA
     Dosage: 200 MCG, TWO PUFFS A  DAY, A TOTAL OF 400 MCG PER DAY
     Route: 055
     Dates: start: 20120626
  2. VENTOLIN [Concomitant]
     Dosage: 2 PUFFS BID AS NEEDED

REACTIONS (2)
  - Asthma [Recovered/Resolved]
  - Circumstance or information capable of leading to medication error [Unknown]
